FAERS Safety Report 4938157-6 (Version None)
Quarter: 2006Q1

REPORT INFORMATION
  Report Type: 
  Country: None (occurrence: None)
  Receive Date: 20060308
  Receipt Date: 20060308
  Transmission Date: 20060701
  Serious: Yes (Disabling)
  Sender: FDA-Public Use
  Company Number: None

PATIENT
  Age: 74 Year
  Sex: Male
  Weight: 67.7 kg

DRUGS (3)
  1. TERAZOSIN HCL [Suspect]
     Indication: BENIGN PROSTATIC HYPERPLASIA
     Dosage: 10 MG QHS PO
     Route: 048
     Dates: start: 20040304, end: 20060202
  2. OXYCODONE [Concomitant]
  3. DARVOCET-N 100 [Concomitant]

REACTIONS (4)
  - DIZZINESS [None]
  - FALL [None]
  - LOSS OF CONSCIOUSNESS [None]
  - TREATMENT NONCOMPLIANCE [None]
